FAERS Safety Report 23498877 (Version 2)
Quarter: 2024Q3

REPORT INFORMATION
  Report Type: Spontaneous
  Country: US (occurrence: US)
  Receive Date: 20240208
  Receipt Date: 20240911
  Transmission Date: 20241017
  Serious: Yes (Hospitalization)
  Sender: DR REDDYS
  Company Number: US-E2BLSMVVAL-SPO/USA/24/0002229

PATIENT
  Age: 40 Year
  Sex: Male

DRUGS (1)
  1. CLOZAPINE [Suspect]
     Active Substance: CLOZAPINE
     Indication: Product used for unknown indication
     Dosage: 200 MG IN MORNING, 100 MG BEDTIME
     Route: 065

REACTIONS (2)
  - Suicidal ideation [Unknown]
  - Circumstance or information capable of leading to medication error [Unknown]
